FAERS Safety Report 9548852 (Version 1)
Quarter: 2013Q2

REPORT INFORMATION
  Report Type: Spontaneous
  Country: US (occurrence: None)
  Receive Date: 20130627
  Receipt Date: 20130627
  Transmission Date: 20140414
  Serious: No
  Sender: FDA-Public Use
  Company Number: 1000045374

PATIENT
  Age: 57 Year
  Sex: Male

DRUGS (16)
  1. LINZESS [Suspect]
     Indication: CONSTIPATION
     Dosage: 1 IN 1 D
     Route: 048
     Dates: start: 201304
  2. TOPAMAX (TOPIRAMATE) (TOPIRAMATE) [Concomitant]
  3. EPZICOM (ABACAVIR SULFATE W/LAMIVUDINE) (ABACAVIR SULFATE W/LAMIVUDINE) [Concomitant]
  4. ISENTRESS (RALTEGRAVIR POTASSIUM) (RALTEGRAVIR POTASSIUM) [Concomitant]
  5. OXYCONTIN (OXYCODONE HYDROCHLORIDE) (OXYCODONE HYDROCHLORIDE) [Concomitant]
  6. METHADONE (METHADONE) [Concomitant]
  7. GABAPENTIN [Concomitant]
  8. PROVIGIL (MODAFINIL) [Concomitant]
  9. AMBIEN (ZOLPIDEM TARTRATE) [Concomitant]
  10. PRISTIQ (DESVENLAFAXINE SUCCINATE) [Concomitant]
  11. OMEPRAZOLE [Concomitant]
  12. RAPAFLO (SILDOSIN) [Concomitant]
  13. AVODART (DUTASTERIDE) [Concomitant]
  14. SINGULAIR [Concomitant]
  15. CARVEDILOL [Concomitant]
  16. RAMIPRIL [Concomitant]

REACTIONS (1)
  - Abdominal pain upper [None]
